FAERS Safety Report 7516894-7 (Version None)
Quarter: 2011Q2

REPORT INFORMATION
  Report Type: 
  Country: None (occurrence: None)
  Receive Date: 20110429
  Receipt Date: 20100717
  Transmission Date: 20111010
  Serious: Yes (Other)
  Sender: FDA-Public Use
  Company Number: US-JNJFOC-20100705332

PATIENT
  Age: 36 Month
  Sex: Female
  Weight: 15.8759 kg

DRUGS (2)
  1. CONCENTRATED TYLENOL INFANT DROPS [Suspect]
     Indication: PYREXIA
     Dosage: ORAL
     Route: 048
     Dates: start: 20100717
  2. CHILDREN'S TYLENOL SUSPENSION [Suspect]
     Indication: PYREXIA
     Dosage: 1 IN 1 TOTAL, ORAL
     Route: 048
     Dates: start: 20100718, end: 20100718

REACTIONS (3)
  - VOMITING [None]
  - PRODUCT QUALITY ISSUE [None]
  - DRUG INEFFECTIVE [None]
